FAERS Safety Report 13822409 (Version 1)
Quarter: 2017Q3

REPORT INFORMATION
  Report Type: Spontaneous
  Country: US (occurrence: US)
  Receive Date: 20170801
  Receipt Date: 20170801
  Transmission Date: 20171127
  Serious: Yes (Other)
  Sender: FDA-Public Use
  Company Number: US-STRIDES ARCOLAB LIMITED-2017SP007014

PATIENT

DRUGS (4)
  1. GANCICLOVIR. [Concomitant]
     Active Substance: GANCICLOVIR
     Indication: CYTOMEGALOVIRUS CHORIORETINITIS
     Dosage: UNK, UNKNOWN
     Route: 031
  2. FOSCARNET [Concomitant]
     Active Substance: FOSCARNET
     Indication: CYTOMEGALOVIRUS CHORIORETINITIS
     Dosage: 2400 ?G/0.1ML
     Route: 031
  3. TACROLIMUS. [Suspect]
     Active Substance: TACROLIMUS
     Indication: IMMUNOSUPPRESSANT DRUG THERAPY
     Dosage: UNK, UNKNOWN
     Route: 065
  4. LEFLUNOMIDE. [Concomitant]
     Active Substance: LEFLUNOMIDE
     Indication: CYTOMEGALOVIRUS CHORIORETINITIS
     Dosage: UNK, UNKNOWN
     Route: 065

REACTIONS (3)
  - Cytomegalovirus chorioretinitis [Recovered/Resolved]
  - Cytomegalovirus viraemia [Recovered/Resolved]
  - Vision blurred [Recovered/Resolved]
